FAERS Safety Report 7374560-5 (Version None)
Quarter: 2011Q1

REPORT INFORMATION
  Report Type: 
  Country: None (occurrence: None)
  Receive Date: 20110325
  Receipt Date: 20100315
  Transmission Date: 20110831
  Serious: No
  Sender: FDA-Public Use
  Company Number: US-MYLANLABS-2010S1004583

PATIENT
  Sex: Male

DRUGS (1)
  1. FENTANYL-100 [Suspect]

REACTIONS (4)
  - LETHARGY [None]
  - DRUG DIVERSION [None]
  - FATIGUE [None]
  - SOMNOLENCE [None]
